FAERS Safety Report 8966371 (Version 1)
Quarter: 2012Q4

REPORT INFORMATION
  Report Type: 
  Country: CA (occurrence: CA)
  Receive Date: 20121214
  Receipt Date: 20121214
  Transmission Date: 20130627
  Serious: Yes (Other)
  Sender: FDA-Public Use
  Company Number: CA-GLAXOSMITHKLINE-A1003614A

PATIENT
  Sex: Female

DRUGS (3)
  1. TYKERB [Suspect]
     Indication: BREAST CANCER METASTATIC
     Dosage: 1250MG Per day
     Route: 048
     Dates: start: 20111223, end: 20120808
  2. XELODA [Suspect]
     Indication: PRODUCT USED FOR UNKNOWN INDICATION
     Dosage: 1500MG Twice per day
     Route: 065
     Dates: end: 20120808
  3. IMODIUM [Concomitant]

REACTIONS (1)
  - Breast cancer metastatic [Not Recovered/Not Resolved]
